FAERS Safety Report 6640165-4 (Version None)
Quarter: 2010Q1

REPORT INFORMATION
  Report Type: 
  Country: None (occurrence: None)
  Receive Date: 20100318
  Receipt Date: 20100225
  Transmission Date: 20100710
  Serious: Yes (Death)
  Sender: FDA-Public Use
  Company Number: JP-ROCHE-689562

PATIENT
  Sex: Female

DRUGS (12)
  1. TOCILIZUMAB [Suspect]
     Indication: RHEUMATOID ARTHRITIS
     Route: 041
     Dates: start: 20090723, end: 20090723
  2. TOCILIZUMAB [Suspect]
     Route: 041
     Dates: start: 20090820, end: 20090820
  3. TOCILIZUMAB [Suspect]
     Route: 041
     Dates: start: 20091001, end: 20091001
  4. TOCILIZUMAB [Suspect]
     Route: 041
     Dates: start: 20091112, end: 20091112
  5. TOCILIZUMAB [Suspect]
     Route: 041
     Dates: start: 20091224, end: 20091224
  6. RHEUMATREX [Concomitant]
     Route: 048
     Dates: end: 20100101
  7. PREDNISOLONE [Concomitant]
     Route: 048
     Dates: end: 20100101
  8. CELCOX [Concomitant]
     Route: 048
     Dates: end: 20100101
  9. MUCOSTA [Concomitant]
     Dosage: FORM: PERORAL AGENT
     Route: 048
     Dates: end: 20100101
  10. BONALON [Concomitant]
     Dosage: DRUG NAME: BONALON 35 MG.
     Route: 048
     Dates: end: 20100101
  11. MOHRUS [Concomitant]
     Dosage: FORM: TAPE. TAKEN AS NEEDED. DRUG NAME REPORTED AS: MAHRUS TAPE
     Route: 061
     Dates: end: 20100101
  12. ISCOTIN [Concomitant]
     Dosage: FORM: PERORAL AGENT.
     Route: 048
     Dates: start: 20090723, end: 20100101

REACTIONS (2)
  - ARTHRALGIA [None]
  - CEREBRAL INFARCTION [None]
